FAERS Safety Report 7762919-3 (Version None)
Quarter: 2011Q3

REPORT INFORMATION
  Report Type: 
  Country: None (occurrence: None)
  Receive Date: 20110920
  Receipt Date: 20110912
  Transmission Date: 20111222
  Serious: Yes (Hospitalization)
  Sender: FDA-Public Use
  Company Number: PHHY2011IE80984

PATIENT
  Age: 72 Year
  Sex: Male

DRUGS (8)
  1. NOVORAPID [Concomitant]
     Indication: TYPE 1 DIABETES MELLITUS
     Route: 058
  2. ASPIRIN [Concomitant]
     Indication: ANTIPLATELET THERAPY
     Dosage: 75 MG, UNK
     Route: 048
  3. RAMIPRIL [Concomitant]
     Indication: HYPERTENSION
     Dosage: 10 MG, UNK
  4. TRAMADOL HCL [Suspect]
     Indication: PROCEDURAL PAIN
     Dosage: 300 MG, UNK
     Route: 048
     Dates: start: 20110628, end: 20110629
  5. PRADAXA [Suspect]
     Indication: ANTIPLATELET THERAPY
     Dosage: 110 MG, UNK
     Route: 048
     Dates: start: 20110628, end: 20110630
  6. ZOPICLONE [Concomitant]
     Indication: SLEEP DISORDER
     Dosage: 7.5 MG, UNK
     Route: 048
  7. LANTUS [Concomitant]
     Indication: TYPE 1 DIABETES MELLITUS
     Route: 058
  8. LESCOL [Concomitant]
     Indication: CARDIOVASCULAR EVENT PROPHYLAXIS
     Dosage: 20 MG, UNK
     Route: 048

REACTIONS (1)
  - DIARRHOEA [None]
